FAERS Safety Report 4687775-1 (Version None)
Quarter: 2005Q2

REPORT INFORMATION
  Report Type: 
  Country: None (occurrence: None)
  Receive Date: 20050610
  Receipt Date: 20050310
  Transmission Date: 20051028
  Serious: Yes (Hospitalization)
  Sender: FDA-Public Use
  Company Number: US-MERCK-0503USA01918

PATIENT
  Age: 49 Year
  Sex: Male
  Weight: 117 kg

DRUGS (18)
  1. VIOXX [Suspect]
     Indication: ARTHRITIS
     Route: 048
     Dates: start: 20010101, end: 20041001
  2. VIOXX [Suspect]
     Indication: BACK PAIN
     Route: 048
     Dates: start: 20010101, end: 20041001
  3. PROZAC [Concomitant]
     Indication: DEPRESSION
     Route: 065
     Dates: start: 20020101, end: 20020101
  4. NORVASC [Concomitant]
     Indication: HYPERTENSION
     Route: 065
     Dates: start: 20010101
  5. ZESTORETIC [Concomitant]
     Indication: HYPERTENSION
     Route: 065
     Dates: start: 20010101
  6. PHENTERMINE [Concomitant]
     Route: 065
     Dates: start: 19980101, end: 20030901
  7. NORTRIPTYLINE [Concomitant]
     Route: 065
  8. GRIFULVIN [Concomitant]
     Route: 065
  9. DIAZEPAM [Concomitant]
     Route: 065
  10. ATENOLOL [Concomitant]
     Indication: HYPERTENSION
     Route: 065
     Dates: start: 20031201
  11. CARBAMAZEPINE [Concomitant]
     Route: 065
  12. PROTONIX [Concomitant]
     Indication: REFLUX GASTRITIS
     Route: 065
  13. LEVAQUIN [Concomitant]
     Route: 065
  14. EPITOL [Concomitant]
     Route: 065
  15. PRINIVIL [Concomitant]
     Route: 065
  16. TUSSIONEX (CHLORPHENIRAMINE POLISTIREX (+) HYDROCODONE POLISTIREX) [Concomitant]
     Route: 065
  17. LISINO [Concomitant]
     Indication: HYPERTENSION
     Route: 065
     Dates: start: 20020101
  18. PREVACID [Concomitant]
     Route: 065

REACTIONS (15)
  - CARPAL TUNNEL SYNDROME [None]
  - CEREBROVASCULAR ACCIDENT [None]
  - CONCUSSION [None]
  - DEAFNESS [None]
  - DIZZINESS [None]
  - GASTROOESOPHAGEAL REFLUX PROPHYLAXIS [None]
  - HEADACHE [None]
  - HYPOAESTHESIA [None]
  - MYOCARDIAL INFARCTION [None]
  - ROAD TRAFFIC ACCIDENT [None]
  - ROTATOR CUFF SYNDROME [None]
  - SIMPLE PARTIAL SEIZURES [None]
  - SWELLING [None]
  - TINNITUS [None]
  - VISION BLURRED [None]
